FAERS Safety Report 6897219-7 (Version None)
Quarter: 2010Q3

REPORT INFORMATION
  Report Type: 
  Country: None (occurrence: None)
  Receive Date: 20100802
  Receipt Date: 20070321
  Transmission Date: 20110219
  Serious: No
  Sender: FDA-Public Use
  Company Number: US-PFIZER INC-2007023345

PATIENT
  Sex: Female
  Weight: 71.7 kg

DRUGS (2)
  1. LYRICA [Suspect]
     Indication: PAIN IN EXTREMITY
     Dates: start: 20061221
  2. PREDNISONE [Concomitant]

REACTIONS (1)
  - COGNITIVE DISORDER [None]
